FAERS Safety Report 10387490 (Version 1)
Quarter: 2014Q3

REPORT INFORMATION
  Report Type: Spontaneous
  Country: US (occurrence: US)
  Receive Date: 20140815
  Receipt Date: 20140815
  Transmission Date: 20150326
  Serious: No
  Sender: FDA-Public Use
  Company Number: US-TARO-2013P1019257

PATIENT
  Age: 76 Year
  Sex: Male
  Weight: 76.66 kg

DRUGS (1)
  1. TERBINAFINE HCL CREAM 1% (MALE) [Suspect]
     Active Substance: TERBINAFINE HYDROCHLORIDE
     Indication: FUNGAL INFECTION
     Dosage: BID
     Route: 061
     Dates: start: 20130906, end: 20130907

REACTIONS (2)
  - Product quality issue [Unknown]
  - Application site vesicles [Recovering/Resolving]

NARRATIVE: CASE EVENT DATE: 201309
